FAERS Safety Report 17389869 (Version 5)
Quarter: 2025Q4

REPORT INFORMATION
  Report Type: Spontaneous
  Country: US (occurrence: US)
  Receive Date: 20200207
  Receipt Date: 20251219
  Transmission Date: 20260117
  Serious: No
  Sender: VERTEX
  Company Number: US-VERTEX PHARMACEUTICALS-2020-002002

PATIENT
  Sex: Male

DRUGS (2)
  1. ORKAMBI [Suspect]
     Active Substance: IVACAFTOR\LUMACAFTOR
     Indication: Cystic fibrosis
     Dosage: 150MG LUMACAFTOR/188MG IVACAFTOR (PACKET), BID
     Route: 061
     Dates: start: 201810
  2. ORKAMBI [Suspect]
     Active Substance: IVACAFTOR\LUMACAFTOR
     Dosage: 100MG LUMACAFTOR/ 125MG IVACAFTOR
     Route: 061

REACTIONS (3)
  - Drug hypersensitivity [Unknown]
  - Aggression [Recovered/Resolved]
  - Defiant behaviour [Recovered/Resolved]
